FAERS Safety Report 12986908 (Version 2)
Quarter: 2016Q4

REPORT INFORMATION
  Report Type: Spontaneous
  Country: US (occurrence: US)
  Receive Date: 20161130
  Receipt Date: 20161201
  Transmission Date: 20170207
  Serious: No
  Sender: FDA-Public Use
  Company Number: US-PFIZER INC-2016543442

PATIENT
  Age: 66 Year
  Sex: Female

DRUGS (3)
  1. PRILOCAINE [Suspect]
     Active Substance: PRILOCAINE
     Indication: HYPOAESTHESIA
     Dosage: UNK
     Route: 061
  2. TETRACAIN [Suspect]
     Active Substance: TETRACAINE HYDROCHLORIDE
     Indication: HYPOAESTHESIA
     Dosage: UNK
     Route: 061
  3. LIDOCAINE HCL [Suspect]
     Active Substance: LIDOCAINE HYDROCHLORIDE
     Indication: HYPOAESTHESIA
     Dosage: UNK
     Route: 061

REACTIONS (3)
  - Drug hypersensitivity [Unknown]
  - Skin disorder [Unknown]
  - Oral mucosal blistering [Unknown]
